FAERS Safety Report 5208351-8 (Version None)
Quarter: 2007Q1

REPORT INFORMATION
  Report Type: 
  Country: None (occurrence: None)
  Receive Date: 20070111
  Receipt Date: 20070111
  Transmission Date: 20070707
  Serious: Yes (Hospitalization)
  Sender: FDA-Public Use
  Company Number: None

PATIENT
  Age: 34 Year
  Sex: Male

DRUGS (3)
  1. KEPPRA [Suspect]
     Indication: CONVULSION
     Dosage: 500 MG BID PO
     Route: 048
     Dates: start: 20060915, end: 20061229
  2. DEPAKOTE [Concomitant]
  3. TRILEPTAL [Concomitant]

REACTIONS (3)
  - ANGER [None]
  - INTERMITTENT EXPLOSIVE DISORDER [None]
  - PHYSICAL ASSAULT [None]
